FAERS Safety Report 13935524 (Version 2)
Quarter: 2018Q1

REPORT INFORMATION
  Report Type: Spontaneous
  Country: US (occurrence: US)
  Receive Date: 20170905
  Receipt Date: 20180223
  Transmission Date: 20180508
  Serious: Yes (Death, Hospitalization)
  Sender: FDA-Public Use
  Company Number: US-ROCHE-1987866

PATIENT
  Age: 82 Year
  Sex: Female

DRUGS (1)
  1. TNKASE [Suspect]
     Active Substance: TENECTEPLASE
     Indication: ACUTE MYOCARDIAL INFARCTION
     Route: 065
     Dates: start: 20170830

REACTIONS (4)
  - Death [Fatal]
  - Haemorrhage intracranial [Unknown]
  - Eye pain [Unknown]
  - Seizure [Unknown]

NARRATIVE: CASE EVENT DATE: 20170830
